FAERS Safety Report 4337768-9 (Version None)
Quarter: 2004Q2

REPORT INFORMATION
  Report Type: 
  Country: None (occurrence: None)
  Receive Date: 20040413
  Receipt Date: 20040406
  Transmission Date: 20050107
  Serious: Yes (Hospitalization, Other)
  Sender: FDA-Public Use
  Company Number: PHEH2004US03909

PATIENT
  Age: 44 Year
  Sex: Male

DRUGS (11)
  1. TEGRETOL-XR [Suspect]
     Indication: CONVULSION
     Dosage: 100 MG, BID
     Route: 048
     Dates: start: 19980101, end: 20040314
  2. TEGRETOL-XR [Suspect]
     Dosage: 100 MG, QHS
     Route: 048
     Dates: start: 20040315, end: 20040401
  3. TEGRETOL-XR [Suspect]
     Dosage: 100 MG, BID
     Route: 048
     Dates: start: 20040402
  4. ZONEGRAN [Suspect]
     Indication: CONVULSION
     Dosage: 100 MG, QD
     Route: 048
     Dates: start: 20040201, end: 20040314
  5. ZONEGRAN [Suspect]
     Dosage: 200 MG, QD
     Route: 048
     Dates: start: 20040315, end: 20040401
  6. CYCLOSPORINE [Concomitant]
     Indication: IMMUNOSUPPRESSANT DRUG THERAPY
     Dosage: 300 MG, QD
     Dates: start: 19990101
  7. FOSAMAX [Concomitant]
     Indication: OSTEOPOROSIS
     Dosage: 70/WEEK
  8. IMURAN [Concomitant]
     Indication: HYPERTENSION
     Dosage: 100 MG, QD
  9. PREDNISONE [Concomitant]
     Indication: RENAL TRANSPLANT
     Dosage: 10 MG, QD
  10. LISINOPRIL [Concomitant]
     Indication: HYPERTENSION
     Dosage: 40 MG, QD
  11. PRAVACHOL [Concomitant]
     Indication: HYPERCHOLESTEROLAEMIA
     Dosage: 100 MG, QD

REACTIONS (3)
  - LOSS OF CONSCIOUSNESS [None]
  - ROAD TRAFFIC ACCIDENT [None]
  - THROMBOSIS [None]
